FAERS Safety Report 9458896 (Version 4)
Quarter: 2014Q1

REPORT INFORMATION
  Report Type: Spontaneous
  Country: FR (occurrence: FR)
  Receive Date: 20130814
  Receipt Date: 20140103
  Transmission Date: 20141002
  Serious: Yes (Life-Threatening, Hospitalization)
  Sender: FDA-Public Use
  Company Number: FR-GLAXOSMITHKLINE-B0913208A

PATIENT
  Age: 31 Year
  Sex: Female

DRUGS (18)
  1. TRACRIUM [Suspect]
     Indication: ANAESTHESIA
     Route: 042
     Dates: start: 20120108, end: 20120108
  2. TAGAMET [Suspect]
     Indication: SPINAL ANAESTHESIA
     Dosage: 400MG SINGLE DOSE
     Route: 048
     Dates: start: 20120108, end: 20120108
  3. EPHEDRINE [Suspect]
     Indication: SPINAL ANAESTHESIA
     Dosage: 60MG SINGLE DOSE
     Route: 042
     Dates: start: 20120108, end: 20120108
  4. EXACYL [Suspect]
     Indication: POSTPARTUM HAEMORRHAGE
     Dosage: 1G SEE DOSAGE TEXT
     Route: 042
     Dates: start: 20120108, end: 20120108
  5. BUPIVACAINE [Suspect]
     Indication: SPINAL ANAESTHESIA
     Dosage: 10MG SINGLE DOSE
     Route: 008
     Dates: start: 20120108, end: 20120108
  6. CARBETOCIN [Suspect]
     Indication: UTERINE ATONY
     Dosage: 100MCG SINGLE DOSE
     Route: 042
     Dates: start: 20120108, end: 20120108
  7. CEFAZOLINE [Suspect]
     Indication: ANTIBIOTIC PROPHYLAXIS
     Dosage: 1UNIT SINGLE DOSE
     Route: 042
     Dates: start: 20120108, end: 20120108
  8. FIBRINOGEN [Suspect]
     Indication: THIRD STAGE POSTPARTUM HAEMORRHAGE
     Dosage: 6G SINGLE DOSE
     Route: 042
     Dates: start: 20120108, end: 20120108
  9. NOVOSEVEN [Suspect]
     Indication: THIRD STAGE POSTPARTUM HAEMORRHAGE
     Dosage: 4MG SINGLE DOSE
     Route: 042
     Dates: start: 20120108, end: 20120108
  10. NALADOR [Suspect]
     Indication: UTERINE ATONY
     Dosage: 500MCG SEE DOSAGE TEXT
     Route: 042
     Dates: start: 20120108, end: 20120108
  11. SEVOFLURANE [Suspect]
     Indication: ANAESTHESIA
     Route: 055
     Dates: start: 20120108, end: 20120108
  12. CELOCURINE [Suspect]
     Indication: ENDOTRACHEAL INTUBATION
     Route: 042
     Dates: start: 20120108, end: 20120108
  13. NEOSYNEPHRINE [Suspect]
     Indication: PRODUCT USED FOR UNKNOWN INDICATION
     Dosage: 100MCG SINGLE DOSE
     Dates: start: 20120108
  14. SUFENTA [Suspect]
     Indication: PRODUCT USED FOR UNKNOWN INDICATION
     Dates: start: 20120108, end: 20120108
  15. DIPRIVAN [Suspect]
     Indication: ANAESTHESIA
     Route: 042
     Dates: start: 20120108
  16. ETOMIDATE [Suspect]
     Dates: start: 20120108, end: 20120108
  17. VOLUVEN [Concomitant]
     Dates: start: 20120108
  18. RINGER LACTATE [Concomitant]
     Dates: start: 20120108, end: 20120108

REACTIONS (16)
  - Renal failure acute [Recovered/Resolved]
  - Dialysis [Recovered/Resolved]
  - Anuria [Unknown]
  - Hyperkalaemia [Unknown]
  - Enterobacter infection [Unknown]
  - Oedema peripheral [Recovered/Resolved]
  - Dyspnoea [Unknown]
  - Abdominal distension [Unknown]
  - Ascites [Unknown]
  - Respiratory failure [Unknown]
  - Anaemia [Unknown]
  - Thrombocytopenia [Unknown]
  - Ascites [Unknown]
  - Rales [Unknown]
  - Renal tubular necrosis [Unknown]
  - Pyrexia [Unknown]
